FAERS Safety Report 14895068 (Version 3)
Quarter: 2018Q2

REPORT INFORMATION
  Report Type: Report from Study
  Country: None (occurrence: US)
  Receive Date: 20180515
  Receipt Date: 20180612
  Transmission Date: 20180711
  Serious: Yes (Other)
  Sender: FDA-Public Use
  Company Number: US-ABBVIE-18K-163-2355204-00

PATIENT
  Age: 53 Year
  Sex: Male
  Weight: 145.28 kg

DRUGS (2)
  1. HUMIRA [Suspect]
     Active Substance: ADALIMUMAB
     Indication: ANKYLOSING SPONDYLITIS
     Route: 058
     Dates: start: 2017, end: 201804
  2. HUMIRA [Suspect]
     Active Substance: ADALIMUMAB
     Route: 058
     Dates: start: 201805

REACTIONS (6)
  - Nerve root compression [Recovered/Resolved]
  - Procedural pain [Recovering/Resolving]
  - Back pain [Recovering/Resolving]
  - Paraesthesia [Recovered/Resolved]
  - Burning sensation [Recovered/Resolved]
  - Vertebral osteophyte [Recovered/Resolved]

NARRATIVE: CASE EVENT DATE: 2018
